FAERS Safety Report 20112839 (Version 1)
Quarter: 2021Q4

REPORT INFORMATION
  Report Type: Spontaneous
  Country: PL (occurrence: None)
  Receive Date: 20211125
  Receipt Date: 20211125
  Transmission Date: 20220303
  Serious: Yes (Other)
  Sender: FDA-Public Use
  Company Number: 2021A816759

PATIENT
  Age: 63 Year
  Sex: Female
  Weight: 62 kg

DRUGS (1)
  1. IMFINZI [Suspect]
     Active Substance: DURVALUMAB
     Indication: Non-small cell lung cancer stage III
     Route: 042
     Dates: start: 20211005

REACTIONS (1)
  - Arthritis [Recovering/Resolving]

NARRATIVE: CASE EVENT DATE: 20211105
